FAERS Safety Report 6720446-6 (Version None)
Quarter: 2010Q2

REPORT INFORMATION
  Report Type: 
  Country: None (occurrence: None)
  Receive Date: 20100511
  Receipt Date: 20100429
  Transmission Date: 20101027
  Serious: Yes (Hospitalization)
  Sender: FDA-Public Use
  Company Number: CH-ELI_LILLY_AND_COMPANY-CH201004004487

PATIENT
  Age: 65 Year
  Sex: Male

DRUGS (6)
  1. PEMETREXED [Suspect]
     Indication: MESOTHELIOMA
     Dosage: UNK, UNK
     Route: 042
     Dates: start: 20090722, end: 20090903
  2. CISPLATIN [Suspect]
     Indication: MESOTHELIOMA
     Dosage: UNK, UNK
     Route: 042
     Dates: start: 20090722, end: 20090903
  3. RADIATION [Suspect]
     Indication: MESOTHELIOMA
     Dosage: 45 D/F, UNK
     Dates: start: 20100120, end: 20100305
  4. METOPROLOL SUCCINATE [Concomitant]
     Dosage: 200 MG, DAILY (1/D)
     Route: 048
  5. LYRICA [Concomitant]
     Dosage: 150 MG, DAILY (1/D)
     Route: 048
  6. PARIET [Concomitant]
     Dosage: 20 MG, DAILY (1/D)
     Route: 048

REACTIONS (1)
  - PLEURAL EFFUSION [None]
